FAERS Safety Report 18491923 (Version 3)
Quarter: 2023Q4

REPORT INFORMATION
  Report Type: Spontaneous
  Country: US (occurrence: US)
  Receive Date: 20201111
  Receipt Date: 20231212
  Transmission Date: 20240110
  Serious: No
  Sender: FDA-Public Use
  Company Number: US-PFIZER INC-2020437851

PATIENT
  Age: 70 Year
  Sex: Female
  Weight: 67.13 kg

DRUGS (1)
  1. PREMARIN [Suspect]
     Active Substance: ESTROGENS, CONJUGATED
     Indication: Hysterectomy
     Dosage: 0.9 MG, DAILY
     Route: 048

REACTIONS (1)
  - Confusional state [Unknown]
